FAERS Safety Report 5377870-6 (Version None)
Quarter: 2007Q3

REPORT INFORMATION
  Report Type: 
  Country: None (occurrence: None)
  Receive Date: 20070703
  Receipt Date: 20070625
  Transmission Date: 20080115
  Serious: Yes (Other)
  Sender: FDA-Public Use
  Company Number: US-PFIZER INC-2007053379

PATIENT
  Sex: Female

DRUGS (3)
  1. XALATAN [Suspect]
     Indication: OPEN ANGLE GLAUCOMA
  2. EXCEDRIN (MIGRAINE) [Concomitant]
  3. ALLEGRA [Concomitant]

REACTIONS (5)
  - BACK INJURY [None]
  - DIZZINESS [None]
  - EYE PRURITUS [None]
  - FALL [None]
  - VISION BLURRED [None]
